FAERS Safety Report 9434757 (Version 1)
Quarter: 2013Q3

REPORT INFORMATION
  Report Type: Spontaneous
  Country: US (occurrence: US)
  Receive Date: 20130801
  Receipt Date: 20130801
  Transmission Date: 20140515
  Serious: Yes (Hospitalization, Other)
  Sender: FDA-Public Use
  Company Number: US-009507513-1307USA015425

PATIENT
  Age: 50 Year
  Sex: Female
  Weight: 68.93 kg

DRUGS (13)
  1. REBETOL [Suspect]
     Indication: HEPATITIS C
     Dosage: 600 MG, BID
     Route: 048
     Dates: start: 20130425, end: 20130531
  2. PEGASYS [Suspect]
     Indication: HEPATITIS C
     Dosage: UNK
     Dates: start: 20130425, end: 20130531
  3. TELAPREVIR [Suspect]
     Indication: HEPATITIS C
     Dosage: UNK
     Dates: start: 2013, end: 2013
  4. ALBUTEROL [Concomitant]
  5. NEURONTIN [Concomitant]
  6. HYDROCHLOROTHIAZIDE [Concomitant]
  7. LISINOPRIL [Concomitant]
  8. LORATADINE [Concomitant]
  9. MELOXICAM [Concomitant]
  10. METFORMIN [Concomitant]
  11. ZOFRAN [Concomitant]
  12. PAXIL [Concomitant]
  13. HYDROXYZINE [Concomitant]
     Dosage: UNK

REACTIONS (3)
  - Renal failure acute [Unknown]
  - Suicidal ideation [Unknown]
  - Anaemia [Unknown]
